FAERS Safety Report 9918487 (Version 1)
Quarter: 2014Q1

REPORT INFORMATION
  Report Type: Spontaneous
  Country: US (occurrence: US)
  Receive Date: 20140224
  Receipt Date: 20140224
  Transmission Date: 20141002
  Serious: No
  Sender: FDA-Public Use
  Company Number: US-BIOGENIDEC-2014BI014348

PATIENT
  Sex: Female

DRUGS (17)
  1. TECFIDERA [Suspect]
     Indication: MULTIPLE SCLEROSIS
     Route: 048
  2. OXYGEN [Concomitant]
  3. CELEBREX [Concomitant]
  4. MINIPRESS [Concomitant]
  5. NITROSTAT [Concomitant]
  6. VERAPAMIL ER [Concomitant]
  7. ZOFRAN [Concomitant]
  8. TRAZODONE [Concomitant]
  9. WARFARIN SODIUM [Concomitant]
  10. CELEXA [Concomitant]
  11. PREVACID DR [Concomitant]
  12. MORPHINE SULFATE CR [Concomitant]
  13. ENDOCET [Concomitant]
  14. ALTACE [Concomitant]
  15. NEURONTIN [Concomitant]
  16. ISOSORBIDE [Concomitant]
  17. BACLOFEN [Concomitant]

REACTIONS (1)
  - Migraine [Not Recovered/Not Resolved]
